FAERS Safety Report 7722092-4 (Version None)
Quarter: 2011Q3

REPORT INFORMATION
  Report Type: 
  Country: None (occurrence: None)
  Receive Date: 20110825
  Receipt Date: 20110816
  Transmission Date: 20111222
  Serious: Yes (Hospitalization)
  Sender: FDA-Public Use
  Company Number: 15543911

PATIENT
  Age: 70 Year
  Sex: Male

DRUGS (5)
  1. ENOXAPARIN SODIUM [Concomitant]
  2. WARFARIN SODIUM [Suspect]
     Indication: EMBOLISM
     Dosage: ORAL
     Route: 048
     Dates: start: 20100830, end: 20101123
  3. PLACEBO [Suspect]
     Indication: EMBOLISM
     Dates: start: 20100101, end: 20100101
  4. ENOXAPARIN SODIUM [Suspect]
     Indication: EMBOLISM
     Dosage: .9 MILLILITER 1 DAY, SC
     Route: 058
     Dates: start: 20101011, end: 20101114
  5. APIXABAN [Suspect]
     Indication: EMBOLISM
     Dosage: 5 MILLIGRAM 2/1 DAY, ORAL
     Route: 048
     Dates: start: 20100830, end: 20101126

REACTIONS (1)
  - PROSTATE CANCER [None]
